FAERS Safety Report 23574683 (Version 1)
Quarter: 2024Q1

REPORT INFORMATION
  Report Type: Spontaneous
  Country: US (occurrence: US)
  Receive Date: 20240228
  Receipt Date: 20240228
  Transmission Date: 20240410
  Serious: Yes (Hospitalization, Other)
  Sender: FDA-Public Use
  Company Number: US-GLAXOSMITHKLINE-US2024AMR024145

PATIENT

DRUGS (1)
  1. LAMICTAL [Suspect]
     Active Substance: LAMOTRIGINE
     Indication: Product used for unknown indication
     Dosage: UNK

REACTIONS (12)
  - Medical induction of coma [Unknown]
  - Pneumonia [Unknown]
  - Thermal burn [Unknown]
  - Blindness [Unknown]
  - Cough [Unknown]
  - Loss of personal independence in daily activities [Unknown]
  - Influenza like illness [Unknown]
  - Dry eye [Unknown]
  - Gait disturbance [Unknown]
  - Pain [Unknown]
  - Discomfort [Unknown]
  - Fatigue [Unknown]
